FAERS Safety Report 16624877 (Version 1)
Quarter: 2019Q3

REPORT INFORMATION
  Report Type: Spontaneous
  Country: US (occurrence: US)
  Receive Date: 20190720
  Receipt Date: 20190720
  Transmission Date: 20191004
  Serious: Yes (Other)
  Sender: FDA-Public Use
  Company Number: None

PATIENT

DRUGS (1)
  1. ATROPINE EYEDROP COMPOUNDED [Suspect]
     Active Substance: ATROPINE

REACTIONS (3)
  - Blindness transient [None]
  - Product compounding quality issue [None]
  - Product preparation error [None]

NARRATIVE: CASE EVENT DATE: 20190701
